FAERS Safety Report 24946873 (Version 2)
Quarter: 2025Q1

REPORT INFORMATION
  Report Type: Report from Study
  Country: US (occurrence: US)
  Receive Date: 20250210
  Receipt Date: 20250212
  Transmission Date: 20250409
  Serious: Yes (Other)
  Sender: NOVARTIS
  Company Number: US-002147023-NVSC2024US182578

PATIENT
  Age: 40 Year
  Sex: Male
  Weight: 99.8 kg

DRUGS (5)
  1. KESIMPTA [Suspect]
     Active Substance: OFATUMUMAB
     Indication: Relapsing multiple sclerosis
     Route: 058
     Dates: start: 20240825
  2. KESIMPTA [Suspect]
     Active Substance: OFATUMUMAB
     Indication: Clinically isolated syndrome
     Dosage: 20 MG, QMO
     Route: 058
  3. KESIMPTA [Suspect]
     Active Substance: OFATUMUMAB
     Indication: Relapsing-remitting multiple sclerosis
  4. KESIMPTA [Suspect]
     Active Substance: OFATUMUMAB
     Indication: Secondary progressive multiple sclerosis
  5. KESIMPTA [Suspect]
     Active Substance: OFATUMUMAB
     Indication: Multiple sclerosis

REACTIONS (19)
  - Hypoglycaemia [Not Recovered/Not Resolved]
  - Chills [Unknown]
  - Hypersomnia [Unknown]
  - Fall [Unknown]
  - Balance disorder [Unknown]
  - Migraine [Unknown]
  - Nausea [Unknown]
  - Salivary hypersecretion [Unknown]
  - Asthenia [Unknown]
  - Gastrointestinal disorder [Unknown]
  - Pyrexia [Unknown]
  - Headache [Unknown]
  - Nasopharyngitis [Unknown]
  - Blood glucose decreased [Not Recovered/Not Resolved]
  - Diarrhoea [Unknown]
  - Abdominal pain [Unknown]
  - Disorientation [Unknown]
  - Dysphemia [Unknown]
  - Mood swings [Unknown]

NARRATIVE: CASE EVENT DATE: 20240826
